FAERS Safety Report 8464322 (Version 3)
Quarter: 2016Q1

REPORT INFORMATION
  Report Type: Spontaneous
  Country: GB (occurrence: GB)
  Receive Date: 20120319
  Receipt Date: 20160216
  Transmission Date: 20160526
  Serious: Yes (Hospitalization, Other)
  Sender: FDA-Public Use
  Company Number: GB-BRISTOL-MYERS SQUIBB COMPANY-16459489

PATIENT
  Age: 34 Year
  Sex: Female

DRUGS (2)
  1. INSULIN [Suspect]
     Active Substance: INSULIN NOS
     Indication: GLUCOSE TOLERANCE IMPAIRED IN PREGNANCY
     Route: 065
  2. METFORMIN HYDROCHLORIDE. [Suspect]
     Active Substance: METFORMIN HYDROCHLORIDE
     Indication: GLUCOSE TOLERANCE IMPAIRED IN PREGNANCY
     Route: 065

REACTIONS (4)
  - Stillbirth [Unknown]
  - Off label use [Unknown]
  - Uterine rupture [Recovered/Resolved]
  - Maternal exposure during pregnancy [Recovered/Resolved]
